FAERS Safety Report 12795120 (Version 1)
Quarter: 2016Q3

REPORT INFORMATION
  Report Type: Spontaneous
  Country: US (occurrence: US)
  Receive Date: 20160929
  Receipt Date: 20160929
  Transmission Date: 20161109
  Serious: Yes (Hospitalization, Other)
  Sender: FDA-Public Use
  Company Number: US-GLAXOSMITHKLINE-US2016141704

PATIENT
  Age: 76 Year
  Sex: Female

DRUGS (12)
  1. ROPINIROLE. [Concomitant]
     Active Substance: ROPINIROLE
  2. SERTRALINE HYDROCHLORIDE. [Concomitant]
     Active Substance: SERTRALINE HYDROCHLORIDE
  3. SINGULAIR [Concomitant]
     Active Substance: MONTELUKAST SODIUM
  4. CEPHALEXIN. [Concomitant]
     Active Substance: CEPHALEXIN
  5. ADVAIR HFA [Suspect]
     Active Substance: FLUTICASONE PROPIONATE\SALMETEROL XINAFOATE
     Indication: CHRONIC OBSTRUCTIVE PULMONARY DISEASE
     Dosage: 2 PUFF(S), BID
     Route: 055
     Dates: start: 2012
  6. TEMAZEPAM. [Concomitant]
     Active Substance: TEMAZEPAM
  7. TRAMADOL. [Concomitant]
     Active Substance: TRAMADOL
  8. AMIODARONE [Concomitant]
     Active Substance: AMIODARONE
  9. PRAVASTATIN. [Concomitant]
     Active Substance: PRAVASTATIN
  10. XANAX [Concomitant]
     Active Substance: ALPRAZOLAM
  11. LEVOTHYROXINE. [Concomitant]
     Active Substance: LEVOTHYROXINE
  12. DIOVAN [Concomitant]
     Active Substance: VALSARTAN

REACTIONS (7)
  - Kidney infection [Recovered/Resolved]
  - Urinary tract infection [Recovered/Resolved]
  - Pain [Unknown]
  - Skin abrasion [Unknown]
  - Fall [Recovered/Resolved]
  - Bronchitis [Recovered/Resolved]
  - Intentional underdose [Recovered/Resolved]

NARRATIVE: CASE EVENT DATE: 201512
